FAERS Safety Report 4490487-0 (Version None)
Quarter: 2004Q4

REPORT INFORMATION
  Report Type: 
  Country: None (occurrence: None)
  Receive Date: 20041102
  Receipt Date: 20040831
  Transmission Date: 20050328
  Serious: Yes (Hospitalization)
  Sender: FDA-Public Use
  Company Number: DE-BRISTOL-MYERS SQUIBB COMPANY-12687877

PATIENT
  Age: 63 Year
  Sex: Female
  Weight: 66 kg

DRUGS (4)
  1. PACLITAXEL [Suspect]
     Indication: BREAST CANCER
     Dosage: ADMINISTERED OVER 3 HOURS CYCLE 1: 05-AUG-2004 (DOSE NOT REPORTED)
     Route: 042
     Dates: start: 20040826, end: 20040826
  2. TAVEGIL [Concomitant]
     Indication: PREMEDICATION
  3. RANITIDINE [Concomitant]
     Indication: PREMEDICATION
  4. DEXAMETHASONE [Concomitant]
     Indication: PREMEDICATION

REACTIONS (2)
  - ASTHMA [None]
  - DYSPNOEA [None]
